FAERS Safety Report 8688864 (Version 2)
Quarter: 2013Q4

REPORT INFORMATION
  Report Type: Spontaneous
  Country: US (occurrence: US)
  Receive Date: 20120727
  Receipt Date: 20131022
  Transmission Date: 20140711
  Serious: Yes (Life-Threatening, Hospitalization, Other)
  Sender: FDA-Public Use
  Company Number: US-ASTRAZENECA-2011SE69797

PATIENT
  Age: 54 Year
  Sex: Female
  Weight: 108.9 kg

DRUGS (25)
  1. SEROQUEL [Suspect]
     Indication: POST-TRAUMATIC STRESS DISORDER
     Route: 048
  2. SEROQUEL [Suspect]
     Indication: BORDERLINE PERSONALITY DISORDER
     Route: 048
  3. SEROQUEL [Suspect]
     Indication: POST-TRAUMATIC STRESS DISORDER
     Route: 048
  4. SEROQUEL [Suspect]
     Indication: BORDERLINE PERSONALITY DISORDER
     Route: 048
  5. SEROQUEL [Suspect]
     Indication: POST-TRAUMATIC STRESS DISORDER
     Route: 048
     Dates: start: 2010
  6. SEROQUEL [Suspect]
     Indication: BORDERLINE PERSONALITY DISORDER
     Route: 048
     Dates: start: 2010
  7. SEROQUEL [Suspect]
     Indication: POST-TRAUMATIC STRESS DISORDER
     Route: 048
     Dates: start: 2010
  8. SEROQUEL [Suspect]
     Indication: BORDERLINE PERSONALITY DISORDER
     Route: 048
     Dates: start: 2010
  9. SEROQUEL [Suspect]
     Indication: POST-TRAUMATIC STRESS DISORDER
     Route: 048
     Dates: start: 2010
  10. SEROQUEL [Suspect]
     Indication: BORDERLINE PERSONALITY DISORDER
     Route: 048
     Dates: start: 2010
  11. OMEPRAZOLE [Suspect]
     Indication: GASTRIC DISORDER
     Route: 048
  12. EFFEXOR [Concomitant]
     Route: 048
  13. MIRTAZAPINE [Concomitant]
     Route: 048
  14. CLONAZAPAM [Concomitant]
     Indication: ANXIETY
     Route: 048
  15. TRAZADONE [Concomitant]
     Indication: INSOMNIA
     Route: 048
  16. LEVOTHYROXINE [Concomitant]
     Indication: THYROID DISORDER
     Route: 048
  17. PRAVASTATIN [Concomitant]
     Indication: BLOOD CHOLESTEROL ABNORMAL
     Route: 048
  18. LOSARTAN [Concomitant]
     Indication: BLOOD PRESSURE ABNORMAL
     Route: 048
  19. METFORMIN [Concomitant]
     Indication: DIABETES MELLITUS
     Route: 048
  20. GLIPIZIDE [Concomitant]
     Indication: DIABETES MELLITUS
     Route: 048
  21. LANTUS [Concomitant]
     Indication: DIABETES MELLITUS
     Dosage: 40 UNIT, HS
     Route: 058
  22. NOVOLOG [Concomitant]
     Indication: DIABETES MELLITUS
     Dosage: 10 UNITS, DAILY
     Route: 058
  23. INVOKANA [Concomitant]
     Indication: DIABETES MELLITUS
     Route: 048
  24. FISH OIL [Concomitant]
     Route: 048
  25. VITAMIN D [Concomitant]
     Indication: DEPRESSION
     Dosage: 2000 UNITS, DAILY
     Route: 048

REACTIONS (16)
  - Suicide attempt [Recovered/Resolved]
  - Self injurious behaviour [Recovered/Resolved]
  - Memory impairment [Unknown]
  - Dysphonia [Unknown]
  - Anxiety [Unknown]
  - Hallucination, auditory [Recovered/Resolved]
  - Anxiety [Recovered/Resolved]
  - Sleep apnoea syndrome [Not Recovered/Not Resolved]
  - Diabetes mellitus [Not Recovered/Not Resolved]
  - Hypertension [Not Recovered/Not Resolved]
  - Hypothyroidism [Not Recovered/Not Resolved]
  - Depression [Unknown]
  - Blood cholesterol increased [Not Recovered/Not Resolved]
  - Off label use [Not Recovered/Not Resolved]
  - Intentional drug misuse [Not Recovered/Not Resolved]
  - Drug dose omission [Recovered/Resolved]
